FAERS Safety Report 5139182-5 (Version None)
Quarter: 2006Q4

REPORT INFORMATION
  Report Type: 
  Country: None (occurrence: None)
  Receive Date: 20061030
  Receipt Date: 20060707
  Transmission Date: 20070319
  Serious: No
  Sender: FDA-Public Use
  Company Number: US-GLAXOSMITHKLINE-A0611447A

PATIENT
  Age: 62 Year
  Sex: Female

DRUGS (10)
  1. ADVAIR HFA [Suspect]
     Indication: CHRONIC OBSTRUCTIVE PULMONARY DISEASE
     Dosage: 1PUFF TWICE PER DAY
     Route: 055
     Dates: start: 20040101
  2. CARAFATE [Concomitant]
  3. POTASSIUM ACETATE [Concomitant]
  4. LASIX [Concomitant]
  5. IPRATROPIUM BROMIDE (NEB) [Concomitant]
  6. PRILOSEC [Concomitant]
  7. SINGULAIR [Concomitant]
  8. PREDNISONE TAB [Concomitant]
  9. XANAX [Concomitant]
  10. MORPHINE [Concomitant]

REACTIONS (1)
  - DRUG INEFFECTIVE [None]
